FAERS Safety Report 8767893 (Version 1)
Quarter: 2012Q4

REPORT INFORMATION
  Report Type: 
  Country: DK (occurrence: DK)
  Receive Date: 20120905
  Receipt Date: 20120905
  Transmission Date: 20130627
  Serious: Yes (Congenital Anomaly)
  Sender: FDA-Public Use
  Company Number: PHHY2012DK074543

PATIENT

DRUGS (1)
  1. CITALOPRAM SANDOZ [Suspect]
     Dosage: 20 mg, BID maternal dose
     Route: 064
     Dates: end: 20120315

REACTIONS (2)
  - Congenital spondylolysis [Not Recovered/Not Resolved]
  - Foetal exposure during pregnancy [Unknown]
